FAERS Safety Report 20913847 (Version 1)
Quarter: 2022Q2

REPORT INFORMATION
  Report Type: Other
  Country: GB (occurrence: GB)
  Receive Date: 20220604
  Receipt Date: 20220604
  Transmission Date: 20220721
  Serious: Yes (Hospitalization, Other)
  Sender: FDA-Public Use
  Company Number: GB-MACLEODS PHARMACEUTICALS US LTD-MAC2022035850

PATIENT

DRUGS (2)
  1. MEMANTINE [Suspect]
     Active Substance: MEMANTINE
     Indication: Dementia
     Dosage: 15 MILLIGRAM, QD
     Route: 065
     Dates: start: 20220215
  2. MEMANTINE [Suspect]
     Active Substance: MEMANTINE
     Dosage: 20 MILLIGRAM, QD
     Route: 065

REACTIONS (1)
  - Deep vein thrombosis [Recovering/Resolving]

NARRATIVE: CASE EVENT DATE: 20220518
